FAERS Safety Report 20869351 (Version 4)
Quarter: 2022Q3

REPORT INFORMATION
  Report Type: Spontaneous
  Country: BR (occurrence: BR)
  Receive Date: 20220524
  Receipt Date: 20220819
  Transmission Date: 20221027
  Serious: Yes (Hospitalization)
  Sender: FDA-Public Use
  Company Number: BR-BIOMARINAP-BR-2022-143391

PATIENT

DRUGS (3)
  1. NAGLAZYME [Suspect]
     Active Substance: GALSULFASE
     Indication: Mucopolysaccharidosis VI
     Dosage: 5 MILLIGRAM, QW
     Route: 042
     Dates: start: 200811
  2. OXYBUTYNIN [Concomitant]
     Active Substance: OXYBUTYNIN
     Indication: Product used for unknown indication
     Dosage: 2.5 MILLILITER, BID
  3. DOXAZOSIN [Concomitant]
     Active Substance: DOXAZOSIN MESYLATE
     Indication: Product used for unknown indication
     Dosage: UNK, QD

REACTIONS (11)
  - Pneumonia [Unknown]
  - Tracheostomy malfunction [Recovered/Resolved]
  - Oxygen saturation decreased [Unknown]
  - Secretion discharge [Unknown]
  - Pain [Unknown]
  - Musculoskeletal discomfort [Unknown]
  - Dyspnoea [Unknown]
  - Urinary retention [Unknown]
  - Chromaturia [Unknown]
  - Pyrexia [Unknown]
  - Aphonia [Unknown]

NARRATIVE: CASE EVENT DATE: 20220101
